FAERS Safety Report 23257264 (Version 2)
Quarter: 2024Q1

REPORT INFORMATION
  Report Type: Spontaneous
  Country: ES (occurrence: ES)
  Receive Date: 20231204
  Receipt Date: 20240201
  Transmission Date: 20240410
  Serious: Yes (Death, Life-Threatening, Hospitalization, Other)
  Sender: FDA-Public Use
  Company Number: ES-EMA-DD-20231103-225467-151023

PATIENT
  Age: 70 Year
  Sex: Male

DRUGS (1)
  1. AZACITIDINE [Suspect]
     Active Substance: AZACITIDINE
     Indication: Myelodysplastic syndrome
     Dosage: 75 MG/M2, 1 DOSE PER 1W

REACTIONS (10)
  - Skin lesion [Recovered/Resolved]
  - Hypotension [Recovered/Resolved]
  - Pneumonia [Fatal]
  - Pyrexia [Recovered/Resolved]
  - Necrotising fasciitis [Fatal]
  - Septic shock [Fatal]
  - Administration site erythema [Recovered/Resolved]
  - Skin swelling [Recovered/Resolved]
  - Administration site pain [Recovered/Resolved]
  - Administration site induration [Recovered/Resolved]
